FAERS Safety Report 6020395-5 (Version None)
Quarter: 2008Q4

REPORT INFORMATION
  Report Type: 
  Country: None (occurrence: None)
  Receive Date: 20081226
  Receipt Date: 20081223
  Transmission Date: 20090506
  Serious: Yes (Other)
  Sender: FDA-Public Use
  Company Number: CH-BRISTOL-MYERS SQUIBB COMPANY-14453542

PATIENT
  Age: 72 Year
  Sex: Male

DRUGS (6)
  1. TRITTICO [Suspect]
     Indication: INSOMNIA
     Dosage: TAB
     Route: 048
     Dates: start: 20081001, end: 20081001
  2. STILNOX [Concomitant]
  3. ASPIRIN [Concomitant]
  4. BISOPROLOL FUMARATE [Concomitant]
  5. FLUDEX [Concomitant]
  6. SORTIS [Concomitant]

REACTIONS (1)
  - DELIRIUM [None]
